FAERS Safety Report 9854944 (Version 1)
Quarter: 2013Q4

REPORT INFORMATION
  Report Type: Spontaneous
  Country: US (occurrence: None)
  Receive Date: 20131226
  Receipt Date: 20131226
  Transmission Date: 20140711
  Serious: Yes (Other)
  Sender: FDA-Public Use
  Company Number: PHEH2013US003186

PATIENT
  Sex: Male

DRUGS (6)
  1. EXFORGE [Suspect]
     Dosage: 1 DF (160 MG VALS + 25 MG AMLO)
  2. WATER PILLS (AMMONIUM CHLORIDE, CAFFEINE) [Concomitant]
  3. XARELTO (RIVAROXABAN) [Concomitant]
  4. FUROSEMIDE (FUROSEMIDE) [Concomitant]
  5. METOPROLOL (METOPROLOL) [Concomitant]
  6. SPIRONOLACTON (SPIRONOLACTONE) [Concomitant]

REACTIONS (2)
  - Oedema peripheral [None]
  - Swelling [None]
